FAERS Safety Report 3941739 (Version 4)
Quarter: 2015Q3

REPORT INFORMATION
  Report Type: Report from Study
  Country: US (occurrence: US)
  Receive Date: 20030424
  Receipt Date: 20150814
  Transmission Date: 20151125
  Serious: Yes (Hospitalization)
  Sender: FDA-Public Use
  Company Number: 171663

PATIENT
  Age: 29 Year
  Sex: Female

DRUGS (3)
  1. HYDROCORTISONE. [Concomitant]
     Active Substance: HYDROCORTISONE
  2. FERROUS FUMARATE [Concomitant]
     Active Substance: FERROUS FUMARATE
  3. AVONEX [Suspect]
     Active Substance: INTERFERON BETA-1A
     Indication: MULTIPLE SCLEROSIS
     Route: 030
     Dates: start: 19980924

REACTIONS (1)
  - Adrenocortical carcinoma [Unknown]

NARRATIVE: CASE EVENT DATE: 2002
